FAERS Safety Report 4961391-6 (Version None)
Quarter: 2006Q2

REPORT INFORMATION
  Report Type: 
  Country: None (occurrence: None)
  Receive Date: 20060403
  Receipt Date: 20060322
  Transmission Date: 20061013
  Serious: Yes (Death, Hospitalization)
  Sender: FDA-Public Use
  Company Number: US-MERCK-0603USA03710

PATIENT
  Age: 52 Year
  Sex: Male
  Weight: 92 kg

DRUGS (7)
  1. NAPRELAN [Concomitant]
     Route: 065
  2. ZOCOR [Concomitant]
     Route: 048
  3. COZAAR [Concomitant]
     Route: 065
  4. PREVACID [Concomitant]
     Route: 065
  5. VIOXX [Suspect]
     Indication: PAIN IN EXTREMITY
     Route: 048
     Dates: start: 20040101
  6. KEFLEX [Concomitant]
     Route: 065
  7. MOTRIN [Concomitant]
     Route: 065

REACTIONS (27)
  - ACUTE MYOCARDIAL INFARCTION [None]
  - BILE DUCT CANCER [None]
  - CARDIAC VALVE VEGETATION [None]
  - CEREBROVASCULAR ACCIDENT [None]
  - CHEST PAIN [None]
  - CONFUSIONAL STATE [None]
  - DEATH [None]
  - DEEP VEIN THROMBOSIS [None]
  - ENDOCARDITIS NONINFECTIVE [None]
  - HEPATIC LESION [None]
  - HYPERTENSION [None]
  - LEUKOCYTOSIS [None]
  - METASTASES TO CENTRAL NERVOUS SYSTEM [None]
  - METASTASES TO LUNG [None]
  - METASTASIS [None]
  - MUSCULOSKELETAL CHEST PAIN [None]
  - PANCREATIC CARCINOMA METASTATIC [None]
  - PERICARDIAL EFFUSION [None]
  - PLEURAL EFFUSION [None]
  - PULMONARY EMBOLISM [None]
  - PULMONARY INFARCTION [None]
  - PULMONARY OEDEMA [None]
  - RENAL INFARCT [None]
  - SPLENIC INFARCTION [None]
  - THROMBOSIS [None]
  - UMBILICAL HERNIA [None]
  - VARICES OESOPHAGEAL [None]
